FAERS Safety Report 5866275-7 (Version None)
Quarter: 2008Q3

REPORT INFORMATION
  Report Type: 
  Country: None (occurrence: None)
  Receive Date: 20080829
  Receipt Date: 20080625
  Transmission Date: 20090109
  Serious: Yes (Other)
  Sender: FDA-Public Use
  Company Number: US-PFIZER INC-2008071315

PATIENT

DRUGS (1)
  1. LIPITOR [Suspect]

REACTIONS (1)
  - HYPOAESTHESIA ORAL [None]
